FAERS Safety Report 16382581 (Version 1)
Quarter: 2019Q2

REPORT INFORMATION
  Report Type: Spontaneous
  Country: US (occurrence: US)
  Receive Date: 20190426
  Receipt Date: 20190426
  Transmission Date: 20190711
  Serious: Yes (Hospitalization)
  Sender: FDA-Public Use
  Company Number: None

PATIENT
  Sex: Female

DRUGS (13)
  1. ENALAPRIL [Concomitant]
     Active Substance: ENALAPRIL
  2. RANITIDINE. [Concomitant]
     Active Substance: RANITIDINE
  3. REPATHA [Suspect]
     Active Substance: EVOLOCUMAB
     Indication: HYPERLIPIDAEMIA
     Route: 058
     Dates: start: 20181105
  4. CLONAZEPAM. [Concomitant]
     Active Substance: CLONAZEPAM
  5. METHOCARBOMOL [Concomitant]
     Active Substance: METHOCARBAMOL
  6. VITAMIN D [Concomitant]
     Active Substance: VITAMIN D NOS
  7. FLUOXETINE [Concomitant]
     Active Substance: FLUOXETINE HYDROCHLORIDE
  8. HLOROT [Concomitant]
  9. OMEPRAZOLE. [Concomitant]
     Active Substance: OMEPRAZOLE
  10. MONTELUKAST [Concomitant]
     Active Substance: MONTELUKAST SODIUM
  11. TOPIRAMATE. [Concomitant]
     Active Substance: TOPIRAMATE
  12. HYDROC [Concomitant]
  13. MELOXICAM. [Concomitant]
     Active Substance: MELOXICAM

REACTIONS (2)
  - Therapy cessation [None]
  - Surgery [None]
